FAERS Safety Report 11643886 (Version 1)
Quarter: 2015Q4

REPORT INFORMATION
  Report Type: Spontaneous
  Country: US (occurrence: None)
  Receive Date: 20151019
  Receipt Date: 20151019
  Transmission Date: 20160304
  Serious: Yes (Hospitalization, Disabling, Other)
  Sender: FDA-Public Use
  Company Number: None

PATIENT
  Age: 50 Year
  Sex: Female
  Weight: 79.38 kg

DRUGS (14)
  1. DMANNOSE [Concomitant]
  2. LEVAQUIN [Suspect]
     Active Substance: LEVOFLOXACIN
     Indication: URINARY TRACT INFECTION
     Dosage: IV FOR 4 DAYS
     Route: 042
     Dates: start: 201308, end: 201407
  3. CIPRO [Suspect]
     Active Substance: CIPROFLOXACIN HYDROCHLORIDE
     Indication: URINARY TRACT INFECTION
     Dosage: 2013/2014 ALTERNATING W LEVAQUIN
     Route: 048
  4. OMEGAS [Concomitant]
  5. ESTRACE [Concomitant]
     Active Substance: ESTRADIOL
  6. OREGANO OIL [Concomitant]
  7. VITAMIN D3 [Concomitant]
     Active Substance: CHOLECALCIFEROL
  8. PROBIOTICS [Concomitant]
     Active Substance: PROBIOTICS NOS
  9. VITAMIN C [Concomitant]
     Active Substance: ASCORBIC ACID
  10. PREGNENOLONE [Concomitant]
     Active Substance: PREGNENOLONE
  11. CURCUMIN [Concomitant]
     Active Substance: CURCUMIN
  12. VITAMIN B12 [Concomitant]
     Active Substance: CYANOCOBALAMIN
  13. BROMELAIN [Concomitant]
     Active Substance: BROMELAINS
  14. MAGNESIUM [Concomitant]
     Active Substance: MAGNESIUM

REACTIONS (12)
  - Urinary tract infection [None]
  - Tendon disorder [None]
  - Neuropathy peripheral [None]
  - Memory impairment [None]
  - Confusional state [None]
  - Fatigue [None]
  - Arthralgia [None]
  - Tendon rupture [None]
  - Vision blurred [None]
  - Limb discomfort [None]
  - Cognitive disorder [None]
  - Toxicity to various agents [None]

NARRATIVE: CASE EVENT DATE: 20130818
